FAERS Safety Report 18611709 (Version 1)
Quarter: 2020Q4

REPORT INFORMATION
  Report Type: Report from Study
  Country: None (occurrence: US)
  Receive Date: 20201214
  Receipt Date: 20201214
  Transmission Date: 20210114
  Serious: Yes (Other)
  Sender: FDA-Public Use
  Company Number: US-ABBVIE-20K-163-3683665-00

PATIENT
  Age: 60 Year
  Sex: Female

DRUGS (1)
  1. HUMIRA [Suspect]
     Active Substance: ADALIMUMAB
     Indication: RHEUMATOID ARTHRITIS
     Route: 058

REACTIONS (4)
  - Joint arthroplasty [Recovering/Resolving]
  - Tendon rupture [Not Recovered/Not Resolved]
  - Somnolence [Recovering/Resolving]
  - Nerve injury [Recovering/Resolving]

NARRATIVE: CASE EVENT DATE: 20201102
